FAERS Safety Report 13618890 (Version 6)
Quarter: 2018Q4

REPORT INFORMATION
  Report Type: Report from Study
  Country: CA (occurrence: CA)
  Receive Date: 20170606
  Receipt Date: 20181018
  Transmission Date: 20190204
  Serious: Yes (Other)
  Sender: FDA-Public Use
  Company Number: CA-PFIZER INC-2017244601

PATIENT
  Age: 39 Year
  Sex: Female

DRUGS (11)
  1. ENTYVIO [Suspect]
     Active Substance: VEDOLIZUMAB
     Indication: COLITIS ULCERATIVE
     Dosage: 300 MG, UNK
     Route: 042
     Dates: start: 20161206
  2. CALCIUM [Concomitant]
     Active Substance: CALCIUM
     Dosage: 650 MG, BID
  3. ZOPICLONE [Concomitant]
     Active Substance: ZOPICLONE
     Dosage: 15 MG, UNK
  4. PANTOLOC [Suspect]
     Active Substance: PANTOPRAZOLE SODIUM
     Indication: GASTROOESOPHAGEAL REFLUX DISEASE
     Dosage: 40 MG, BID
     Route: 048
     Dates: start: 201010
  5. MAGNESIUM [Concomitant]
     Active Substance: MAGNESIUM
     Dosage: 420 MG, TID
  6. PERCOCET [Concomitant]
     Active Substance: ACETAMINOPHEN\OXYCODONE HYDROCHLORIDE
     Dosage: UNK
  7. ATIVAN [Concomitant]
     Active Substance: LORAZEPAM
     Dosage: 1 MG, UNK
     Route: 060
  8. ENTYVIO [Suspect]
     Active Substance: VEDOLIZUMAB
     Dosage: 300 MG, UNK
     Route: 042
     Dates: start: 20170711
  9. SYNTHROID [Concomitant]
     Active Substance: LEVOTHYROXINE SODIUM
     Dosage: 0.1 MG,
  10. CALCIUM CITRATE [Concomitant]
     Active Substance: CALCIUM CITRATE
     Dosage: 400 MG, TID
  11. ROCALTROL [Concomitant]
     Active Substance: CALCITRIOL
     Dosage: 1.5 MG, QD

REACTIONS (6)
  - Peripheral swelling [Not Recovered/Not Resolved]
  - Malaise [Unknown]
  - Colitis ulcerative [Unknown]
  - Condition aggravated [Unknown]
  - Therapeutic reaction time decreased [Unknown]
  - Blood test abnormal [Unknown]

NARRATIVE: CASE EVENT DATE: 201705
